FAERS Safety Report 9410086 (Version 2)
Quarter: 2013Q3

REPORT INFORMATION
  Report Type: Spontaneous
  Country: GB (occurrence: GB)
  Receive Date: 20130719
  Receipt Date: 20130729
  Transmission Date: 20140515
  Serious: Yes (Other)
  Sender: FDA-Public Use
  Company Number: GB-JNJFOC-20130707114

PATIENT
  Sex: Male

DRUGS (2)
  1. RISPERDAL CONSTA [Suspect]
     Indication: SCHIZOPHRENIA
     Route: 030
  2. RISPERDAL CONSTA [Suspect]
     Indication: SCHIZOPHRENIA
     Dosage: FOR 5 YEARS.
     Route: 030

REACTIONS (14)
  - Renal disorder [Recovering/Resolving]
  - Cardiac arrest [Recovering/Resolving]
  - Brain injury [Not Recovered/Not Resolved]
  - Cardiac disorder [Recovering/Resolving]
  - Mental status changes [Recovering/Resolving]
  - Vision blurred [Recovering/Resolving]
  - Amnesia [Not Recovered/Not Resolved]
  - Sensory loss [Not Recovered/Not Resolved]
  - Gastric disorder [Not Recovered/Not Resolved]
  - Hepatic function abnormal [Not Recovered/Not Resolved]
  - Disturbance in attention [Not Recovered/Not Resolved]
  - Visual acuity reduced [Recovering/Resolving]
  - Bundle branch block [Recovering/Resolving]
  - Drug ineffective [Unknown]
